FAERS Safety Report 6000682-7 (Version None)
Quarter: 2008Q4

REPORT INFORMATION
  Report Type: 
  Country: None (occurrence: None)
  Receive Date: 20081215
  Receipt Date: 20081201
  Transmission Date: 20090506
  Serious: Yes (Other)
  Sender: FDA-Public Use
  Company Number: JP-ROCHE-598284

PATIENT
  Sex: Male
  Weight: 67 kg

DRUGS (9)
  1. PEG-INTERFERON ALFA 2A (RO 25-8310) [Suspect]
     Indication: HEPATITIS C
     Route: 058
     Dates: start: 20080606, end: 20080919
  2. PEG-INTERFERON ALFA 2A (RO 25-8310) [Suspect]
     Dosage: DOSE DECREASED
     Route: 058
     Dates: start: 20080926, end: 20081003
  3. RIBAVIRIN [Suspect]
     Indication: HEPATITIS C
     Route: 048
     Dates: start: 20080606, end: 20080626
  4. RIBAVIRIN [Suspect]
     Dosage: DOSE DECREASED
     Route: 048
     Dates: start: 20080627, end: 20080710
  5. RIBAVIRIN [Suspect]
     Dosage: DOSE INCREASED.
     Route: 048
     Dates: start: 20080711, end: 20080821
  6. RIBAVIRIN [Suspect]
     Dosage: DOSE DECREASED
     Route: 048
     Dates: start: 20080822, end: 20080925
  7. RIBAVIRIN [Suspect]
     Dosage: DOSE DECREASED.
     Route: 048
     Dates: start: 20080926, end: 20081009
  8. ATELEC [Concomitant]
     Route: 048
  9. BLOPRESS [Concomitant]
     Route: 048

REACTIONS (4)
  - ANAEMIA [None]
  - ANOREXIA [None]
  - CARDIAC FAILURE [None]
  - PLEURAL EFFUSION [None]
